FAERS Safety Report 6675344-3 (Version None)
Quarter: 2010Q2

REPORT INFORMATION
  Report Type: 
  Country: None (occurrence: None)
  Receive Date: 20100409
  Receipt Date: 20100329
  Transmission Date: 20101027
  Serious: No
  Sender: FDA-Public Use
  Company Number: A0844739A

PATIENT
  Age: 53 Year
  Sex: Female

DRUGS (2)
  1. TYKERB [Suspect]
     Dosage: 5TAB PER DAY
     Route: 048
     Dates: start: 20100101
  2. XELODA [Concomitant]

REACTIONS (4)
  - ABDOMINAL DISCOMFORT [None]
  - ALOPECIA [None]
  - FATIGUE [None]
  - SKIN DISCOLOURATION [None]
